FAERS Safety Report 20720950 (Version 1)
Quarter: 2022Q2

REPORT INFORMATION
  Report Type: Spontaneous
  Country: US (occurrence: None)
  Receive Date: 20220418
  Receipt Date: 20220418
  Transmission Date: 20220721
  Serious: Yes (Hospitalization)
  Sender: FDA-Public Use
  Company Number: None

PATIENT
  Age: 89 Year
  Sex: Male
  Weight: 72.57 kg

DRUGS (14)
  1. IMATINIB [Suspect]
     Active Substance: IMATINIB
     Indication: Chronic myeloid leukaemia
     Dosage: FREQUENCY : DAILY;?
     Route: 048
  2. ALLOPURINOL [Concomitant]
  3. AUGMENTIN [Concomitant]
     Active Substance: AMOXICILLIN\CLAVULANATE POTASSIUM
  4. Bisacodyl Rectal [Concomitant]
  5. VITAMIN D3 [Concomitant]
     Active Substance: CHOLECALCIFEROL
  6. WARFARIN [Concomitant]
     Active Substance: WARFARIN
  7. COLACE [Concomitant]
     Active Substance: DOCUSATE SODIUM
  8. Ferralet [Concomitant]
  9. FISH OIL [Concomitant]
     Active Substance: FISH OIL
  10. MUCINEX DM [Concomitant]
     Active Substance: DEXTROMETHORPHAN HYDROBROMIDE\GUAIFENESIN
  11. FLAX SEED [Concomitant]
     Active Substance: FLAX SEED
  12. MULTAQ [Concomitant]
     Active Substance: DRONEDARONE
  13. VITAMINS [Concomitant]
     Active Substance: VITAMINS
  14. TAMSULOSIN [Concomitant]
     Active Substance: TAMSULOSIN

REACTIONS (6)
  - Hyperkalaemia [None]
  - Cardiac arrest [None]
  - Urinary tract infection [None]
  - White blood cell count decreased [None]
  - Platelet count decreased [None]
  - Haemoglobin decreased [None]
